FAERS Safety Report 23161908 (Version 2)
Quarter: 2023Q4

REPORT INFORMATION
  Report Type: Spontaneous
  Country: US (occurrence: US)
  Receive Date: 20231109
  Receipt Date: 20231218
  Transmission Date: 20240110
  Serious: Yes (Hospitalization)
  Sender: FDA-Public Use
  Company Number: US-STRIDES ARCOLAB LIMITED-2023SP016671

PATIENT
  Age: 3 Year
  Sex: Female

DRUGS (7)
  1. LAMIVUDINE [Suspect]
     Active Substance: LAMIVUDINE
     Indication: HIV infection
     Dosage: UNK, (ACCIDENTLY TOOK ANTIRETROVIRAL MEDICATIONS AT DOSE OF 1300 MG/M2), MORE THAN THE MAXIMUM RECOM
     Route: 065
  2. LAMIVUDINE [Suspect]
     Active Substance: LAMIVUDINE
     Indication: Antiretroviral therapy
  3. NEVIRAPINE [Suspect]
     Active Substance: NEVIRAPINE
     Indication: HIV infection
     Dosage: UNK, (ACCIDENTLY TOOK ANTIRETROVIRAL MEDICATIONSAT DOSE OF  1300 MG/M2), MORE THAN THE MAXIMUM RECOM
     Route: 065
  4. NEVIRAPINE [Suspect]
     Active Substance: NEVIRAPINE
     Indication: Antiretroviral therapy
  5. ZIDOVUDINE [Suspect]
     Active Substance: ZIDOVUDINE
     Indication: HIV infection
     Dosage: 73 MILLIGRAM/KILOGRAM, MORE THAN THE MAXIMUM RECOMMENDED DOSE
     Route: 065
  6. ZIDOVUDINE [Suspect]
     Active Substance: ZIDOVUDINE
     Indication: Antiretroviral therapy
  7. COTRIMOXAZOLE [Concomitant]
     Active Substance: SULFAMETHOXAZOLE\TRIMETHOPRIM
     Indication: Antibiotic prophylaxis
     Dosage: UNK
     Route: 065

REACTIONS (9)
  - Rash morbilliform [Recovered/Resolved]
  - Anaemia [Recovered/Resolved]
  - Cardiac murmur [Recovered/Resolved]
  - Conjunctival hyperaemia [Recovered/Resolved]
  - Oral mucosal erythema [Recovered/Resolved]
  - Fatigue [Recovered/Resolved]
  - Pyrexia [Recovered/Resolved]
  - Transcription medication error [Unknown]
  - Accidental overdose [Unknown]
